FAERS Safety Report 8992645 (Version 1)
Quarter: 2013Q1

REPORT INFORMATION
  Report Type: Spontaneous
  Country: US (occurrence: US)
  Receive Date: 20130101
  Receipt Date: 20130101
  Transmission Date: 20140127
  Serious: Yes (Other)
  Sender: FDA-Public Use
  Company Number: PHEH2012US024282

PATIENT
  Sex: Female
  Weight: 91.61 kg

DRUGS (6)
  1. SANDOSTATIN LAR [Suspect]
     Indication: CARCINOID TUMOUR OF THE STOMACH
     Dosage: 30 MG, ONCE MONTHLY MONTH
     Route: 048
  2. IRON [Concomitant]
     Dosage: DAILY
  3. CYANOCOBALAMIN [Concomitant]
  4. DEMEROL [Concomitant]
     Dosage: 100 MG, UNK
  5. MYLICON [Concomitant]
     Dosage: 1 MG, UNK
  6. VERSED [Concomitant]
     Dosage: 9 MG, UNK
     Route: 041

REACTIONS (7)
  - Metaplasia [Unknown]
  - Gastritis atrophic [Unknown]
  - Haemorrhage [Unknown]
  - Polyp [Unknown]
  - Neoplasm [Unknown]
  - Disability [Unknown]
  - Blood pressure increased [Unknown]
